FAERS Safety Report 16237433 (Version 1)
Quarter: 2019Q2

REPORT INFORMATION
  Report Type: Spontaneous
  Country: US (occurrence: US)
  Receive Date: 20190424
  Receipt Date: 20190424
  Transmission Date: 20190711
  Serious: No
  Sender: FDA-Public Use
  Company Number: None

PATIENT
  Age: 24 Year
  Sex: Female
  Weight: 60.75 kg

DRUGS (1)
  1. DYSPORT [Suspect]
     Active Substance: ABOBOTULINUMTOXINA
     Indication: SKIN WRINKLING
     Dates: start: 20190418

REACTIONS (3)
  - Vision blurred [None]
  - Dizziness [None]
  - Throat tightness [None]

NARRATIVE: CASE EVENT DATE: 20190418
